FAERS Safety Report 4498055-1 (Version None)
Quarter: 2004Q4

REPORT INFORMATION
  Report Type: 
  Country: None (occurrence: None)
  Receive Date: 20041109
  Receipt Date: 20041109
  Transmission Date: 20050328
  Serious: Yes (Other)
  Sender: FDA-Public Use
  Company Number: None

PATIENT
  Age: 42 Year
  Sex: Male
  Weight: 74.8435 kg

DRUGS (1)
  1. ZOCOR [Suspect]
     Indication: BLOOD CHOLESTEROL INCREASED
     Dosage: 10MG  DAILY ORAL
     Route: 048
     Dates: start: 20020901, end: 20041105

REACTIONS (6)
  - ASTHENIA [None]
  - BLOOD TEST ABNORMAL [None]
  - IMMOBILE [None]
  - INFLUENZA [None]
  - MYALGIA [None]
  - PAIN IN EXTREMITY [None]
